FAERS Safety Report 11950387 (Version 1)
Quarter: 2016Q1

REPORT INFORMATION
  Report Type: Spontaneous
  Country: US (occurrence: None)
  Receive Date: 20160122
  Receipt Date: 20160122
  Transmission Date: 20160526
  Serious: No
  Sender: FDA-Public Use
  Company Number: None

PATIENT
  Age: 63 Year
  Sex: Female

DRUGS (3)
  1. PEGASYS [Concomitant]
     Active Substance: PEGINTERFERON ALFA-2A
  2. RIBAVIRIN. [Concomitant]
     Active Substance: RIBAVIRIN
  3. HARVONI [Suspect]
     Active Substance: LEDIPASVIR\SOFOSBUVIR
     Indication: HEPATITIS
     Dosage: 90-400MG 1 TAB QD PO
     Route: 048
     Dates: start: 20151130

REACTIONS (1)
  - Fatigue [None]

NARRATIVE: CASE EVENT DATE: 2015
